FAERS Safety Report 16935770 (Version 1)
Quarter: 2019Q4

REPORT INFORMATION
  Report Type: Spontaneous
  Country: US (occurrence: US)
  Receive Date: 20190827
  Receipt Date: 20190827
  Transmission Date: 20200122
  Serious: Yes (Hospitalization)
  Sender: FDA-Public Use
  Company Number: None

PATIENT
  Age: 53 Year
  Sex: Male

DRUGS (1)
  1. SPIRONOLACTONE. [Suspect]
     Active Substance: SPIRONOLACTONE
     Indication: GYNAECOMASTIA
     Route: 048
     Dates: start: 20190329, end: 20190520

REACTIONS (1)
  - Dehydration [None]

NARRATIVE: CASE EVENT DATE: 20190510
